FAERS Safety Report 6335947-2 (Version None)
Quarter: 2009Q3

REPORT INFORMATION
  Report Type: 
  Country: None (occurrence: None)
  Receive Date: 20090831
  Receipt Date: 20090831
  Transmission Date: 20100115
  Serious: Yes (Other)
  Sender: FDA-Public Use
  Company Number: None

PATIENT

DRUGS (1)
  1. ATENOLOL [Suspect]
     Indication: PALPITATIONS
     Dosage: 25 MG DAILY
     Dates: start: 20080701

REACTIONS (4)
  - ACTIVITIES OF DAILY LIVING IMPAIRED [None]
  - BURNING SENSATION [None]
  - FATIGUE [None]
  - MUSCLE TWITCHING [None]
